FAERS Safety Report 20781028 (Version 1)
Quarter: 2022Q2

REPORT INFORMATION
  Report Type: Spontaneous
  Country: US (occurrence: US)
  Receive Date: 20220504
  Receipt Date: 20220504
  Transmission Date: 20220720
  Serious: Yes (Other)
  Sender: FDA-Public Use
  Company Number: US-SUN PHARMACEUTICAL INDUSTRIES LTD-2022R1-334858

PATIENT
  Age: 54 Year
  Sex: Female

DRUGS (5)
  1. ANASTROZOLE [Suspect]
     Active Substance: ANASTROZOLE
     Indication: Chemotherapy
     Dosage: UNK
     Route: 065
     Dates: start: 201611, end: 201711
  2. EXEMESTANE [Suspect]
     Active Substance: EXEMESTANE
     Indication: Chemotherapy
     Dosage: UNK
     Route: 065
     Dates: start: 201806, end: 202008
  3. PREDNISONE [Concomitant]
     Active Substance: PREDNISONE
     Indication: Fasciitis
     Dosage: UNK (60 MG)
     Route: 065
  4. PREDNISONE [Concomitant]
     Active Substance: PREDNISONE
     Dosage: 10 MILLIGRAM, DAILY
     Route: 065
  5. METHOTREXATE [Concomitant]
     Active Substance: METHOTREXATE
     Indication: Fasciitis
     Dosage: 10 MILLIGRAM, WEEKLY
     Route: 065

REACTIONS (2)
  - Myopathy [Recovering/Resolving]
  - Fasciitis [Recovering/Resolving]

NARRATIVE: CASE EVENT DATE: 20170601
